FAERS Safety Report 4407147-4 (Version None)
Quarter: 2004Q3

REPORT INFORMATION
  Report Type: 
  Country: None (occurrence: None)
  Receive Date: 20040723
  Receipt Date: 20040723
  Transmission Date: 20050211
  Serious: Yes (Other)
  Sender: FDA-Public Use
  Company Number: None

PATIENT
  Age: 77 Year
  Sex: Male
  Weight: 94.3 kg

DRUGS (5)
  1. TERAZOSIN HCL [Suspect]
  2. CELECOXIB [Concomitant]
  3. OMEPRAZOLE [Concomitant]
  4. FLUNISOLIDE [Concomitant]
  5. ALBUTEROL [Concomitant]

REACTIONS (1)
  - DIZZINESS [None]
